FAERS Safety Report 21687552 (Version 1)
Quarter: 2022Q4

REPORT INFORMATION
  Report Type: Report from Study
  Country: GB (occurrence: GB)
  Receive Date: 20221206
  Receipt Date: 20221206
  Transmission Date: 20230112
  Serious: Yes (Hospitalization, Other)
  Sender: FDA-Public Use
  Company Number: GB-JNJFOC-20220901088

PATIENT
  Age: 40 Year
  Sex: Female
  Weight: 91 kg

DRUGS (57)
  1. BORTEZOMIB [Suspect]
     Active Substance: BORTEZOMIB
     Indication: Product used for unknown indication
     Dosage: UNK
     Route: 065
     Dates: start: 20200522
  2. BORTEZOMIB [Suspect]
     Active Substance: BORTEZOMIB
     Dosage: UNK (CYCLE 2 )
     Route: 065
     Dates: start: 20200619
  3. BORTEZOMIB [Suspect]
     Active Substance: BORTEZOMIB
     Dosage: UNK (CYCLE 3)
     Route: 065
     Dates: start: 20200717
  4. BORTEZOMIB [Suspect]
     Active Substance: BORTEZOMIB
     Dosage: UNK (CYCLE 4)
     Route: 065
     Dates: start: 20200819
  5. BORTEZOMIB [Suspect]
     Active Substance: BORTEZOMIB
     Dosage: UNK (CYCLE 5)
     Route: 065
     Dates: start: 20200911
  6. BORTEZOMIB [Suspect]
     Active Substance: BORTEZOMIB
     Dosage: UNK (CYCLE 6)
     Route: 065
     Dates: start: 20201230
  7. BORTEZOMIB [Suspect]
     Active Substance: BORTEZOMIB
     Dosage: UNK (CYCLE 7)
     Route: 065
     Dates: start: 20210127
  8. BORTEZOMIB [Suspect]
     Active Substance: BORTEZOMIB
     Dosage: UNK (CYCLE 8)
     Route: 065
     Dates: start: 20210224
  9. BORTEZOMIB [Suspect]
     Active Substance: BORTEZOMIB
     Dosage: UNK (CYCLE 9)
     Route: 065
     Dates: start: 20210324
  10. BORTEZOMIB [Suspect]
     Active Substance: BORTEZOMIB
     Dosage: UNK (CYCLE 10)
     Route: 065
     Dates: start: 20210421
  11. BORTEZOMIB [Suspect]
     Active Substance: BORTEZOMIB
     Dosage: UNK (CYCLE 11)
     Route: 065
     Dates: start: 20210520
  12. BORTEZOMIB [Suspect]
     Active Substance: BORTEZOMIB
     Dosage: UNK (CYCLE 12)
     Route: 065
     Dates: start: 20210616
  13. BORTEZOMIB [Suspect]
     Active Substance: BORTEZOMIB
     Dosage: UNK (CYCLE 13)
     Route: 065
     Dates: start: 20210923
  14. BORTEZOMIB [Suspect]
     Active Substance: BORTEZOMIB
     Dosage: UNK (CYCLE 15)
     Route: 065
     Dates: start: 20211124
  15. BORTEZOMIB [Suspect]
     Active Substance: BORTEZOMIB
     Dosage: UNK (CYCLE 16)
     Route: 065
     Dates: start: 20211222
  16. BORTEZOMIB [Suspect]
     Active Substance: BORTEZOMIB
     Dosage: UNK (CYCLE 14)
     Route: 065
     Dates: start: 20211021
  17. DEXAMETHASONE [Suspect]
     Active Substance: DEXAMETHASONE
     Indication: Product used for unknown indication
     Dosage: UNK (CYCLE 1)
     Route: 065
     Dates: start: 20200522
  18. DEXAMETHASONE [Suspect]
     Active Substance: DEXAMETHASONE
     Dosage: UNK (CYCLE 2)
     Route: 065
     Dates: start: 20200619
  19. DEXAMETHASONE [Suspect]
     Active Substance: DEXAMETHASONE
     Dosage: UNK (CYCLE 3)
     Route: 065
     Dates: start: 20200717
  20. DEXAMETHASONE [Suspect]
     Active Substance: DEXAMETHASONE
     Dosage: UNK (CYCLE 4)
     Route: 065
     Dates: start: 20200819
  21. DEXAMETHASONE [Suspect]
     Active Substance: DEXAMETHASONE
     Dosage: UNK (CYCLE 5)
     Route: 065
     Dates: start: 20200911
  22. DEXAMETHASONE [Suspect]
     Active Substance: DEXAMETHASONE
     Dosage: UNK (CYCLE 6)
     Route: 065
     Dates: start: 20201230
  23. DEXAMETHASONE [Suspect]
     Active Substance: DEXAMETHASONE
     Dosage: UNK (CYCLE 7)
     Route: 065
     Dates: start: 20210127
  24. DEXAMETHASONE [Suspect]
     Active Substance: DEXAMETHASONE
     Dosage: UNK (CYCLE 8)
     Route: 065
     Dates: start: 20210224
  25. DEXAMETHASONE [Suspect]
     Active Substance: DEXAMETHASONE
     Dosage: UNK (CYCLE 9)
     Route: 065
     Dates: start: 20210324
  26. DEXAMETHASONE [Suspect]
     Active Substance: DEXAMETHASONE
     Dosage: UNK (CYCLE 10)
     Route: 065
     Dates: start: 20210421
  27. DEXAMETHASONE [Suspect]
     Active Substance: DEXAMETHASONE
     Dosage: UNK (CYCLE 11)
     Route: 065
     Dates: start: 20210520
  28. DEXAMETHASONE [Suspect]
     Active Substance: DEXAMETHASONE
     Dosage: UNK (CYCLE 12)
     Route: 065
     Dates: start: 20210616
  29. DEXAMETHASONE [Suspect]
     Active Substance: DEXAMETHASONE
     Dosage: UNK (CYCLE 13)
     Route: 065
     Dates: start: 20210923
  30. DEXAMETHASONE [Suspect]
     Active Substance: DEXAMETHASONE
     Dosage: UNK (CYCLE 14)
     Route: 065
     Dates: start: 20211021
  31. DEXAMETHASONE [Suspect]
     Active Substance: DEXAMETHASONE
     Dosage: UNK (CYCLE 15)
     Route: 065
     Dates: start: 20211124
  32. DEXAMETHASONE [Suspect]
     Active Substance: DEXAMETHASONE
     Dosage: UNK (CYCLE 16)
     Route: 065
     Dates: start: 20211222
  33. PANOBINOSTAT [Suspect]
     Active Substance: PANOBINOSTAT
     Indication: Plasma cell myeloma
     Dosage: UNK (CYCLE 1)
     Route: 065
     Dates: start: 20200522
  34. PANOBINOSTAT [Suspect]
     Active Substance: PANOBINOSTAT
     Dosage: UNK (CYCLE 2)
     Route: 065
     Dates: start: 20200619
  35. PANOBINOSTAT [Suspect]
     Active Substance: PANOBINOSTAT
     Dosage: UNK (CYCLE 3)
     Route: 065
     Dates: start: 20200717
  36. PANOBINOSTAT [Suspect]
     Active Substance: PANOBINOSTAT
     Dosage: UNK (CYCLE 4)
     Route: 065
     Dates: start: 20210127
  37. PANOBINOSTAT [Suspect]
     Active Substance: PANOBINOSTAT
     Dosage: UNK (CYCLE 5)
     Route: 065
     Dates: start: 20200911
  38. PANOBINOSTAT [Suspect]
     Active Substance: PANOBINOSTAT
     Dosage: UNK (CYCLE 6)
     Route: 065
     Dates: start: 20201230
  39. PANOBINOSTAT [Suspect]
     Active Substance: PANOBINOSTAT
     Dosage: UNK (CYCLE 7)
     Route: 065
     Dates: start: 20210127
  40. PANOBINOSTAT [Suspect]
     Active Substance: PANOBINOSTAT
     Dosage: UNK (CYCLE 8)
     Route: 065
     Dates: start: 20210224
  41. PANOBINOSTAT [Suspect]
     Active Substance: PANOBINOSTAT
     Dosage: UNK (CYCLE 9)
     Route: 065
     Dates: start: 20210324
  42. PANOBINOSTAT [Suspect]
     Active Substance: PANOBINOSTAT
     Dosage: UNK (CYCLE 10)
     Route: 065
     Dates: start: 20210421
  43. PANOBINOSTAT [Suspect]
     Active Substance: PANOBINOSTAT
     Dosage: UNK (CYCLE 11)
     Route: 065
     Dates: start: 20210520
  44. PANOBINOSTAT [Suspect]
     Active Substance: PANOBINOSTAT
     Dosage: UNK (CYCLE 12)
     Route: 065
     Dates: start: 20210616
  45. PANOBINOSTAT [Suspect]
     Active Substance: PANOBINOSTAT
     Dosage: UNK (CYCLE 13)
     Route: 065
     Dates: start: 20210923
  46. PANOBINOSTAT [Suspect]
     Active Substance: PANOBINOSTAT
     Dosage: UNK (CYCLE 14)
     Route: 065
     Dates: start: 20211021
  47. PANOBINOSTAT [Suspect]
     Active Substance: PANOBINOSTAT
     Dosage: UNK (CYCLE 15)
     Route: 065
     Dates: start: 20211124
  48. PANOBINOSTAT [Suspect]
     Active Substance: PANOBINOSTAT
     Dosage: UNK (CYCLE 16)
     Route: 065
     Dates: start: 20211222
  49. VELCADE [Suspect]
     Active Substance: BORTEZOMIB
     Indication: Product used for unknown indication
     Dosage: UNK
     Route: 065
     Dates: start: 20200911
  50. VELCADE [Suspect]
     Active Substance: BORTEZOMIB
     Dosage: UNK
     Route: 065
     Dates: start: 20200619
  51. VELCADE [Suspect]
     Active Substance: BORTEZOMIB
     Dosage: UNK
     Route: 065
     Dates: start: 20200522
  52. VELCADE [Suspect]
     Active Substance: BORTEZOMIB
     Dosage: UNK
     Route: 065
     Dates: start: 20200717
  53. VELCADE [Suspect]
     Active Substance: BORTEZOMIB
     Dosage: UNK
     Route: 065
     Dates: start: 20201230
  54. VELCADE [Suspect]
     Active Substance: BORTEZOMIB
     Dosage: UNK
     Route: 065
     Dates: start: 20200819
  55. LENOGRASTIM [Concomitant]
     Active Substance: LENOGRASTIM
     Indication: Peripheral sensory neuropathy
     Dosage: UNK
     Route: 065
     Dates: start: 20210217
  56. LENOGRASTIM [Concomitant]
     Active Substance: LENOGRASTIM
     Indication: Neutropenia
     Dosage: UNK
     Route: 065
     Dates: start: 20210127
  57. ACETAMINOPHEN [Concomitant]
     Active Substance: ACETAMINOPHEN
     Indication: Product used for unknown indication
     Dosage: UNK
     Route: 065

REACTIONS (7)
  - Neutropenic sepsis [Recovered/Resolved]
  - Swelling [Recovering/Resolving]
  - Feeling abnormal [Recovering/Resolving]
  - Breast abscess [Unknown]
  - Limb discomfort [Recovering/Resolving]
  - Back pain [Recovered/Resolved]
  - Fatigue [Unknown]

NARRATIVE: CASE EVENT DATE: 20200925
